FAERS Safety Report 4849937-X (Version None)
Quarter: 2005Q4

REPORT INFORMATION
  Report Type: 
  Country: None (occurrence: None)
  Receive Date: 20051101
  Receipt Date: 20050720
  Transmission Date: 20060501
  Serious: Yes (Other)
  Sender: FDA-Public Use
  Company Number: MK200506-0183-2

PATIENT
  Age: 82 Year
  Sex: Female

DRUGS (1)
  1. NEUTROSPEC [Suspect]
     Indication: PYREXIA
     Dosage: 20.2 MCI, ONE TIME, IV
     Route: 042
     Dates: start: 20050613, end: 20050613

REACTIONS (3)
  - HYPOTENSION [None]
  - OXYGEN SATURATION DECREASED [None]
  - SYNCOPE [None]
